FAERS Safety Report 11857553 (Version 2)
Quarter: 2016Q1

REPORT INFORMATION
  Report Type: Report from Study
  Country: MX (occurrence: MX)
  Receive Date: 20151221
  Receipt Date: 20160112
  Transmission Date: 20160526
  Serious: Yes (Hospitalization, Other)
  Sender: FDA-Public Use
  Company Number: MX-ABBVIE-15P-107-1522438-00

PATIENT
  Age: 69 Year
  Sex: Male
  Weight: 92.1 kg

DRUGS (7)
  1. VIEKIRA PAK [Suspect]
     Active Substance: DASABUVIR\OMBITASVIR\PARITAPREVIR\RITONAVIR
     Indication: HEPATITIS C
     Dosage: 2Q 24 AND DASABUVIR 1 Q 12 HOURS
     Route: 048
     Dates: start: 20151128, end: 20151210
  2. INDERALICI [Concomitant]
     Indication: VARICES OESOPHAGEAL
     Route: 048
  3. ALDACTONE [Concomitant]
     Active Substance: SPIRONOLACTONE
     Indication: PRODUCT USED FOR UNKNOWN INDICATION
     Route: 048
  4. MICCIL [Concomitant]
     Indication: HEPATIC ENCEPHALOPATHY
     Dosage: IN THE MORNING EVERY 8 HOURS
     Route: 048
  5. OMEPRAZOLE. [Concomitant]
     Active Substance: OMEPRAZOLE
     Indication: GASTRITIS
     Dosage: 1 IN THE MORNING
     Route: 048
  6. RIVOTRIL [Concomitant]
     Active Substance: CLONAZEPAM
     Indication: INSOMNIA
     Dosage: HALF AT NIGHT
     Route: 048
  7. VIRAZIDE [Concomitant]
     Indication: PRODUCT USED FOR UNKNOWN INDICATION
     Route: 048
     Dates: start: 20151130

REACTIONS (6)
  - Hepatic failure [Recovered/Resolved]
  - Malaise [Recovered/Resolved]
  - Blood albumin decreased [Recovered/Resolved]
  - Blood bilirubin increased [Recovered/Resolved]
  - Nausea [Recovered/Resolved]
  - Asthenia [Unknown]

NARRATIVE: CASE EVENT DATE: 20151207
